FAERS Safety Report 6845100-1 (Version None)
Quarter: 2010Q3

REPORT INFORMATION
  Report Type: 
  Country: None (occurrence: None)
  Receive Date: 20100715
  Receipt Date: 20070815
  Transmission Date: 20110219
  Serious: No
  Sender: FDA-Public Use
  Company Number: US-PFIZER INC-2007068078

PATIENT
  Sex: Female
  Weight: 57.2 kg

DRUGS (2)
  1. CHANTIX [Suspect]
     Indication: SMOKING CESSATION THERAPY
     Dosage: EVERY DAY
     Dates: start: 20070801, end: 20070813
  2. ANTIBIOTICS [Concomitant]
     Indication: PNEUMONIA
     Dates: start: 20070701

REACTIONS (2)
  - DYSPEPSIA [None]
  - NAUSEA [None]
